FAERS Safety Report 9749221 (Version 2)
Quarter: 2014Q1

REPORT INFORMATION
  Report Type: Spontaneous
  Country: US (occurrence: US)
  Receive Date: 20131212
  Receipt Date: 20140312
  Transmission Date: 20141002
  Serious: Yes (Other)
  Sender: FDA-Public Use
  Company Number: US-INCYTE CORPORATION-2013IN002643

PATIENT
  Sex: Female
  Weight: 60.77 kg

DRUGS (10)
  1. JAKAFI [Suspect]
     Indication: MYELOFIBROSIS
     Dosage: 15 MG, BID
     Route: 048
     Dates: start: 201305
  2. JAKAFI [Suspect]
     Dosage: 15 MG, QD
     Route: 048
  3. JAKAFI [Suspect]
     Dosage: 10 MG, BID
     Route: 048
     Dates: start: 20131107
  4. JAKAFI [Suspect]
     Dosage: 15 MG, BID
     Route: 048
     Dates: start: 20140108
  5. LEVAQUIN [Concomitant]
     Dosage: UNK
  6. PRILOSEC                           /00661201/ [Concomitant]
     Dosage: UNK
  7. TUMS 500 CALCIUM [Concomitant]
  8. VITAMIN D3 [Concomitant]
  9. ASPIRIN [Concomitant]
     Dosage: UNK
  10. PRILOSEC DR [Suspect]

REACTIONS (8)
  - Haemoglobin decreased [Unknown]
  - Oral infection [Unknown]
  - Night sweats [Unknown]
  - Flatulence [Unknown]
  - Infection [Unknown]
  - White blood cell count decreased [Unknown]
  - Headache [Unknown]
  - Dizziness [Unknown]
